FAERS Safety Report 11799570 (Version 1)
Quarter: 2015Q4

REPORT INFORMATION
  Report Type: Report from Study
  Country: IT (occurrence: IT)
  Receive Date: 20151203
  Receipt Date: 20151203
  Transmission Date: 20160305
  Serious: Yes (Death, Hospitalization)
  Sender: FDA-Public Use
  Company Number: IT-EISAI MEDICAL RESEARCH-EC-2015-012465

PATIENT
  Age: 81 Year
  Sex: Female
  Weight: 39.5 kg

DRUGS (1)
  1. LENVATINIB [Suspect]
     Active Substance: LENVATINIB
     Indication: THYROID CANCER
     Route: 048
     Dates: start: 20150901, end: 20150904

REACTIONS (5)
  - Diarrhoea [Fatal]
  - Dyspnoea [Fatal]
  - Seizure [Fatal]
  - Hyponatraemia [Fatal]
  - Pyrexia [Fatal]

NARRATIVE: CASE EVENT DATE: 20150904
